FAERS Safety Report 4530746-6 (Version None)
Quarter: 2004Q4

REPORT INFORMATION
  Report Type: 
  Country: None (occurrence: None)
  Receive Date: 20041216
  Receipt Date: 20041206
  Transmission Date: 20050328
  Serious: Yes (Death, Hospitalization)
  Sender: FDA-Public Use
  Company Number: 2004US001469

PATIENT
  Age: 52 Year
  Sex: Female

DRUGS (2)
  1. AMBISOME [Suspect]
     Indication: UPPER RESPIRATORY FUNGAL INFECTION
     Dosage: SEE IMAGE
     Route: 042
     Dates: start: 20040617, end: 20040621
  2. AMBISOME [Suspect]
     Indication: UPPER RESPIRATORY FUNGAL INFECTION
     Dosage: SEE IMAGE
     Route: 042
     Dates: start: 20040622, end: 20040722

REACTIONS (4)
  - ACUTE MYELOID LEUKAEMIA [None]
  - CONDITION AGGRAVATED [None]
  - DRUG INEFFECTIVE [None]
  - RESPIRATORY TRACT INFECTION FUNGAL [None]
